FAERS Safety Report 13550749 (Version 1)
Quarter: 2017Q2

REPORT INFORMATION
  Report Type: Spontaneous
  Country: US (occurrence: US)
  Receive Date: 20170516
  Receipt Date: 20170516
  Transmission Date: 20170830
  Serious: No
  Sender: FDA-Public Use
  Company Number: US-BAYER-2017-092228

PATIENT
  Age: 95 Year
  Sex: Female
  Weight: 43 kg

DRUGS (5)
  1. CLARITIN-D 24 HOUR [Suspect]
     Active Substance: LORATADINE\PSEUDOEPHEDRINE SULFATE
     Indication: VIRAL UPPER RESPIRATORY TRACT INFECTION
  2. THYROID [Concomitant]
     Active Substance: LEVOTHYROXINE\LIOTHYRONINE
  3. CHOLESTEROL [Concomitant]
     Active Substance: CHOLESTEROL
  4. ADVIL [Concomitant]
     Active Substance: IBUPROFEN
  5. CLARITIN-D 24 HOUR [Suspect]
     Active Substance: LORATADINE\PSEUDOEPHEDRINE SULFATE
     Indication: HYPERSENSITIVITY
     Dosage: UNK
     Route: 048

REACTIONS (3)
  - Vision blurred [Unknown]
  - Dry mouth [Unknown]
  - Product use issue [Unknown]

NARRATIVE: CASE EVENT DATE: 20170512
